FAERS Safety Report 9427747 (Version 1)
Quarter: 2013Q3

REPORT INFORMATION
  Report Type: Spontaneous
  Country: US (occurrence: None)
  Receive Date: 20130729
  Receipt Date: 20130729
  Transmission Date: 20140515
  Serious: Yes (Hospitalization)
  Sender: FDA-Public Use
  Company Number: None

PATIENT
  Sex: Female

DRUGS (20)
  1. DEPO PROVERA [Suspect]
     Indication: CONTRACEPTION
     Dosage: 150 1 INJECTION EVERY 12 WEEKS
     Dates: start: 20080501, end: 20120205
  2. DEPO PROVERA [Suspect]
     Indication: WHITE BLOOD CELL COUNT DECREASED
     Dosage: 150 1 INJECTION EVERY 12 WEEKS
     Dates: start: 20080501, end: 20120205
  3. DEPO PROVERA [Suspect]
     Indication: HAEMORRHAGE
     Dosage: 150 1 INJECTION EVERY 12 WEEKS
     Dates: start: 20080501, end: 20120205
  4. DEPO PROVERA [Suspect]
     Indication: METABOLIC DISORDER
     Dosage: 150 1 INJECTION EVERY 12 WEEKS
     Dates: start: 20080501, end: 20120205
  5. B12 INJECTIONS [Concomitant]
  6. MOTRIN [Concomitant]
  7. MIGRAIN HEADACHE [Concomitant]
  8. FOLIC ACID [Concomitant]
  9. FERRIOUS SULFATE [Concomitant]
  10. ANTIBIOTICS [Concomitant]
  11. MUSCLE RELAXERS [Concomitant]
  12. SKIN CREAM [Concomitant]
  13. MCLIZINE [Concomitant]
  14. VICODIN [Concomitant]
  15. OMEGA 3 [Concomitant]
  16. HERBAL TEAS [Concomitant]
  17. VICODEN [Concomitant]
  18. ANTIBIOTICS [Concomitant]
  19. SKIN CREAM FOR PIGEMENTATION [Concomitant]
  20. NASAL SPRAY [Concomitant]

REACTIONS (17)
  - Haemorrhage [None]
  - Cold sweat [None]
  - Immune system disorder [None]
  - Weight increased [None]
  - Alopecia [None]
  - Malaise [None]
  - Osteoarthritis [None]
  - Spinal osteoarthritis [None]
  - Fatigue [None]
  - Vision blurred [None]
  - Visual acuity reduced [None]
  - Mood swings [None]
  - Anaemia [None]
  - Pigmentation disorder [None]
  - Amnesia [None]
  - Disturbance in attention [None]
  - Activities of daily living impaired [None]
